FAERS Safety Report 13038297 (Version 1)
Quarter: 2016Q4

REPORT INFORMATION
  Report Type: Report from Study
  Country: None (occurrence: US)
  Receive Date: 20161219
  Receipt Date: 20161219
  Transmission Date: 20170207
  Serious: No
  Sender: FDA-Public Use
  Company Number: US-BIOVITRUM-2015US0378

PATIENT
  Age: 42 Year
  Sex: Female

DRUGS (1)
  1. KINERET [Suspect]
     Active Substance: ANAKINRA
     Route: 058
     Dates: start: 20150610

REACTIONS (2)
  - Injection site urticaria [Unknown]
  - Injection site rash [Unknown]

NARRATIVE: CASE EVENT DATE: 20150624
